FAERS Safety Report 4934980-2 (Version None)
Quarter: 2006Q1

REPORT INFORMATION
  Report Type: 
  Country: None (occurrence: None)
  Receive Date: 20060127
  Receipt Date: 20051130
  Transmission Date: 20060701
  Serious: Yes (Other)
  Sender: FDA-Public Use
  Company Number: 2005163518

PATIENT
  Age: 72 Year
  Sex: Female

DRUGS (15)
  1. LYRICA [Suspect]
     Indication: BACK PAIN
     Dosage: 150 MG (50 MG, 2 IN 1 D)
     Dates: start: 20051026
  2. ACIPHEX [Concomitant]
  3. BENTYL [Concomitant]
  4. BENZONATATE [Concomitant]
  5. CELEBREX [Concomitant]
  6. COZAAR [Concomitant]
  7. DITROPAN [Concomitant]
  8. HYDROCHLOROTHIAZIDE [Concomitant]
  9. NORVASC [Concomitant]
  10. PROZAC [Concomitant]
  11. XANAX [Concomitant]
  12. LOMOTIL [Concomitant]
  13. NASONEX [Concomitant]
  14. ASTELIN [Concomitant]
  15. VITAMINS [Concomitant]

REACTIONS (2)
  - AGEUSIA [None]
  - DRY MOUTH [None]
